FAERS Safety Report 15222336 (Version 1)
Quarter: 2018Q3

REPORT INFORMATION
  Report Type: Spontaneous
  Country: US (occurrence: US)
  Receive Date: 20180731
  Receipt Date: 20180731
  Transmission Date: 20181010
  Serious: Yes (Other)
  Sender: FDA-Public Use
  Company Number: US-AMGEN-USASP2018101982

PATIENT
  Age: 36 Year
  Sex: Male

DRUGS (3)
  1. XGEVA [Suspect]
     Active Substance: DENOSUMAB
     Dosage: 60 MG, QMO
     Route: 065
     Dates: start: 201708
  2. PROLIA [Suspect]
     Active Substance: DENOSUMAB
     Indication: PRODUCT USED FOR UNKNOWN INDICATION
     Dosage: 60 MG, UNK
     Route: 065
     Dates: start: 201709
  3. XGEVA [Suspect]
     Active Substance: DENOSUMAB
     Indication: BONE GIANT CELL TUMOUR
     Dosage: 120 MG, UNK
     Route: 065
     Dates: start: 201608

REACTIONS (4)
  - Off label use [Unknown]
  - Food allergy [Not Recovered/Not Resolved]
  - Anaphylactic reaction [Unknown]
  - Bone giant cell tumour [Unknown]

NARRATIVE: CASE EVENT DATE: 201608
